FAERS Safety Report 6390855-6 (Version None)
Quarter: 2009Q4

REPORT INFORMATION
  Report Type: 
  Country: None (occurrence: None)
  Receive Date: 20091003
  Receipt Date: 20090917
  Transmission Date: 20100525
  Serious: Yes (Life-Threatening)
  Sender: FDA-Public Use
  Company Number: VAL_00312_2009

PATIENT
  Sex: Female

DRUGS (1)
  1. ROCALTROL [Suspect]
     Indication: OSTEOPOROSIS
     Dosage: 0.5 MG QD, ORAL
     Route: 048
     Dates: end: 20090812

REACTIONS (6)
  - HYPERTENSION [None]
  - LONG QT SYNDROME [None]
  - POST PROCEDURAL COMPLICATION [None]
  - PROCEDURAL PAIN [None]
  - STRESS [None]
  - TENDON RUPTURE [None]
